FAERS Safety Report 7622470-8 (Version None)
Quarter: 2011Q3

REPORT INFORMATION
  Report Type: 
  Country: None (occurrence: None)
  Receive Date: 20110718
  Receipt Date: 20110718
  Transmission Date: 20111222
  Serious: Yes (Other)
  Sender: FDA-Public Use
  Company Number: None

PATIENT
  Sex: Female
  Weight: 32.6 kg

DRUGS (1)
  1. DEPAKOTE ER [Suspect]
     Indication: EPILEPSY
     Dosage: TWO QD PO
     Route: 048
     Dates: start: 20100504

REACTIONS (3)
  - SOMNOLENCE [None]
  - ADVERSE REACTION [None]
  - PRODUCT SUBSTITUTION ISSUE [None]
